FAERS Safety Report 23537573 (Version 1)
Quarter: 2024Q1

REPORT INFORMATION
  Report Type: Report from Study
  Country: US (occurrence: US)
  Receive Date: 20240219
  Receipt Date: 20240219
  Transmission Date: 20240409
  Serious: Yes (Death, Other)
  Sender: FDA-Public Use
  Company Number: US-GILEAD-2024-0662317

PATIENT
  Sex: Female

DRUGS (25)
  1. AMBRISENTAN [Suspect]
     Active Substance: AMBRISENTAN
     Indication: Pulmonary arterial hypertension
     Dosage: 10 MG, QD
     Route: 065
  2. TROSPIUM CHLORIDE [Concomitant]
     Active Substance: TROSPIUM CHLORIDE
  3. MUCINEX [Concomitant]
     Active Substance: GUAIFENESIN
  4. CALCIUM CARBONATE\ERGOCALCIFEROL [Concomitant]
     Active Substance: CALCIUM CARBONATE\ERGOCALCIFEROL
  5. SYSTANE HYDRATION PF PRESERVATIVE FREE [Concomitant]
     Active Substance: POLYETHYLENE GLYCOL 400\PROPYLENE GLYCOL
  6. TYLENOL [Concomitant]
     Active Substance: ACETAMINOPHEN
  7. LYSINE [Concomitant]
     Active Substance: LYSINE
  8. CEPHALEXIN [Concomitant]
     Active Substance: CEPHALEXIN
  9. CETIRIZINE HYDROCHLORIDE [Concomitant]
     Active Substance: CETIRIZINE HYDROCHLORIDE
  10. RITUXAN [Concomitant]
     Active Substance: RITUXIMAB
  11. FUROSEMIDE [Concomitant]
     Active Substance: FUROSEMIDE
  12. METOPROLOL TARTRATE [Concomitant]
     Active Substance: METOPROLOL TARTRATE
  13. LEVOTHYROXINE SODIUM [Concomitant]
     Active Substance: LEVOTHYROXINE SODIUM
  14. POTASSIUM CHLORIDE\RIBOFLAVIN 5^-PHOSPHATE SODIUM [Concomitant]
     Active Substance: POTASSIUM CHLORIDE\RIBOFLAVIN 5^-PHOSPHATE SODIUM
  15. RESTASIS [Concomitant]
     Active Substance: CYCLOSPORINE
  16. FLUTICASONE PROPIONATE [Concomitant]
     Active Substance: FLUTICASONE PROPIONATE
  17. FOLIC ACID [Concomitant]
     Active Substance: FOLIC ACID
  18. RHINOCORT ALLERGY [Concomitant]
     Active Substance: BUDESONIDE
  19. HERBALS\PLANTAGO OVATA SEED COAT [Concomitant]
     Active Substance: HERBALS\PLANTAGO OVATA SEED COAT
  20. LOSARTAN POTASSIUM [Concomitant]
     Active Substance: LOSARTAN POTASSIUM
  21. ERGOCALCIFEROL [Concomitant]
     Active Substance: ERGOCALCIFEROL
  22. SIMVASTATIN [Concomitant]
     Active Substance: SIMVASTATIN
  23. ASPIRIN [Concomitant]
     Active Substance: ASPIRIN
  24. SINGULAIR [Concomitant]
     Active Substance: MONTELUKAST SODIUM
  25. ISOSORBIDE MONONITRATE [Concomitant]
     Active Substance: ISOSORBIDE MONONITRATE

REACTIONS (1)
  - Death [Fatal]
